FAERS Safety Report 22591538 (Version 1)
Quarter: 2023Q2

REPORT INFORMATION
  Report Type: Spontaneous
  Country: NL (occurrence: NL)
  Receive Date: 20230612
  Receipt Date: 20230612
  Transmission Date: 20230722
  Serious: Yes (Death, Other)
  Sender: FDA-Public Use
  Company Number: NL-GILEAD-2023-0632047

PATIENT
  Age: 67 Year
  Sex: Male

DRUGS (1)
  1. ZYDELIG [Suspect]
     Active Substance: IDELALISIB
     Indication: Burkitt^s lymphoma
     Dosage: 150 MG, BID
     Route: 048

REACTIONS (2)
  - Disease progression [Fatal]
  - Off label use [Not Recovered/Not Resolved]
